FAERS Safety Report 18336130 (Version 1)
Quarter: 2020Q4

REPORT INFORMATION
  Report Type: Spontaneous
  Country: US (occurrence: US)
  Receive Date: 20201001
  Receipt Date: 20201001
  Transmission Date: 20210113
  Serious: No
  Sender: FDA-Public Use
  Company Number: US-SA-2020SA266298

PATIENT

DRUGS (5)
  1. PEPPERMINT OIL [MENTHA X PIPERITA ESSENTIAL OIL] [Concomitant]
     Dosage: UNK
     Route: 065
  2. DAILY VITE [ASCORBIC ACID;CALCIUM PANTOTHENATE;COLECALCIFEROL;CYANOCOB [Concomitant]
     Dosage: UNK
     Route: 065
  3. LAVENDER OIL [Concomitant]
     Active Substance: LAVENDER OIL
     Dosage: UNK
     Route: 065
  4. VITAMIN D3 [Concomitant]
     Active Substance: CHOLECALCIFEROL
     Dosage: UNK
     Route: 065
  5. AUBAGIO [Suspect]
     Active Substance: TERIFLUNOMIDE
     Indication: MULTIPLE SCLEROSIS
     Dosage: 14 MG, QD
     Route: 048
     Dates: start: 201601

REACTIONS (2)
  - Rash [Unknown]
  - Product dose omission issue [Unknown]
